FAERS Safety Report 19014138 (Version 2)
Quarter: 2021Q1

REPORT INFORMATION
  Report Type: Spontaneous
  Country: US (occurrence: US)
  Receive Date: 20210316
  Receipt Date: 20210318
  Transmission Date: 20210420
  Serious: No
  Sender: FDA-Public Use
  Company Number: US-TAKEDA-2021TUS016772

PATIENT
  Sex: Female
  Weight: 73 kg

DRUGS (1)
  1. VELCADE [Suspect]
     Active Substance: BORTEZOMIB
     Indication: PLASMA CELL MYELOMA
     Dosage: 2.3 MILLIGRAM, QD
     Route: 065
     Dates: start: 20201009

REACTIONS (2)
  - No adverse event [Unknown]
  - Product dose omission issue [Unknown]
